FAERS Safety Report 6291020-3 (Version None)
Quarter: 2009Q3

REPORT INFORMATION
  Report Type: 
  Country: None (occurrence: None)
  Receive Date: 20090730
  Receipt Date: 20090720
  Transmission Date: 20100115
  Serious: Yes (Hospitalization)
  Sender: FDA-Public Use
  Company Number: DE-AMGEN-US351278

PATIENT
  Sex: Male
  Weight: 76 kg

DRUGS (1)
  1. ENBREL [Suspect]
     Indication: PSORIASIS
     Dosage: BLINDED DOSE
     Route: 058
     Dates: start: 20081217, end: 20090525

REACTIONS (2)
  - DYSAESTHESIA [None]
  - PARAESTHESIA [None]
